FAERS Safety Report 24393947 (Version 1)
Quarter: 2024Q4

REPORT INFORMATION
  Report Type: Spontaneous
  Country: US (occurrence: US)
  Receive Date: 20241003
  Receipt Date: 20241003
  Transmission Date: 20250115
  Serious: No
  Sender: BIOMARIN
  Company Number: US-BIOMARINAP-US-2024-160875

PATIENT

DRUGS (1)
  1. PALYNZIQ [Suspect]
     Active Substance: PEGVALIASE-PQPZ
     Indication: Product used for unknown indication
     Dosage: 2.5 MILLIGRAM, QW
     Route: 058
     Dates: start: 20240910

REACTIONS (3)
  - Injection site reaction [Unknown]
  - Injection site swelling [Unknown]
  - Off label use [Unknown]
